FAERS Safety Report 14354064 (Version 2)
Quarter: 2018Q1

REPORT INFORMATION
  Report Type: Spontaneous
  Country: GB (occurrence: GB)
  Receive Date: 20180105
  Receipt Date: 20180203
  Transmission Date: 20180509
  Serious: Yes (Other)
  Sender: FDA-Public Use
  Company Number: GB-AUROBINDO-AUR-APL-2018-000010

PATIENT
  Age: 58 Year
  Sex: Female
  Weight: 70 kg

DRUGS (17)
  1. PREDNISOLONE. [Concomitant]
     Active Substance: PREDNISOLONE
     Dosage: FOR 3 DAYS ONLY
  2. CREON [Concomitant]
     Active Substance: PANCRELIPASE AMYLASE\PANCRELIPASE LIPASE\PANCRELIPASE PROTEASE
     Indication: PRODUCT USED FOR UNKNOWN INDICATION
     Dosage: UNKNOWN
  3. CREON [Concomitant]
     Active Substance: PANCRELIPASE AMYLASE\PANCRELIPASE LIPASE\PANCRELIPASE PROTEASE
     Dosage: ()
  4. PREDNISOLONE. [Concomitant]
     Active Substance: PREDNISOLONE
     Indication: PRODUCT USED FOR UNKNOWN INDICATION
     Dosage: FOR 3 DAYS ONLY
  5. ROSUVASTATIN CALCIUM. [Concomitant]
     Active Substance: ROSUVASTATIN CALCIUM
     Indication: PRODUCT USED FOR UNKNOWN INDICATION
     Dosage: UNKNOWN
  6. ROSUVASTATIN CALCIUM. [Concomitant]
     Active Substance: ROSUVASTATIN CALCIUM
     Dosage: ()
  7. NOVORAPID [Concomitant]
     Active Substance: INSULIN ASPART
     Dosage: ()
  8. NOVORAPID [Concomitant]
     Active Substance: INSULIN ASPART
     Dosage: UNK ()
  9. PREDNISOLONE. [Concomitant]
     Active Substance: PREDNISOLONE
     Dosage: 30 MG, FOR 3 DAYS ONLY
  10. FUCIDIN [Concomitant]
     Active Substance: FUSIDIC ACID
     Indication: ARTHROPOD BITE
     Dosage: UNK
  11. ROSUVASTATIN CALCIUM. [Concomitant]
     Active Substance: ROSUVASTATIN CALCIUM
     Dosage: UNK ()
  12. NOVORAPID [Concomitant]
     Active Substance: INSULIN ASPART
     Indication: PRODUCT USED FOR UNKNOWN INDICATION
     Dosage: UNKNOWN
  13. OMEPRAZOLE. [Concomitant]
     Active Substance: OMEPRAZOLE
     Indication: PRODUCT USED FOR UNKNOWN INDICATION
     Dosage: UNKNOWN
  14. FEMSEVEN                           /00045401/ [Concomitant]
     Active Substance: ESTRADIOL\LEVONORGESTREL
     Indication: PRODUCT USED FOR UNKNOWN INDICATION
     Dosage: UNKNOWN
  15. OMEPRAZOLE. [Concomitant]
     Active Substance: OMEPRAZOLE
     Dosage: UNK ()
  16. CETIRIZINE [Suspect]
     Active Substance: CETIRIZINE HYDROCHLORIDE
     Indication: ALLERGY TO ARTHROPOD BITE
     Dosage: 10 MG, UNK
     Route: 048
     Dates: start: 20171205, end: 20171205
  17. OMEPRAZOLE. [Concomitant]
     Active Substance: OMEPRAZOLE
     Dosage: ()

REACTIONS (13)
  - Dysgeusia [Not Recovered/Not Resolved]
  - Oral discomfort [Unknown]
  - Gingival pain [Not Recovered/Not Resolved]
  - Agitation [Recovered/Resolved]
  - Dysphagia [Not Recovered/Not Resolved]
  - Eustachian tube disorder [Unknown]
  - Pharyngeal oedema [Not Recovered/Not Resolved]
  - Heart rate increased [Not Recovered/Not Resolved]
  - Swollen tongue [Not Recovered/Not Resolved]
  - Chest discomfort [Recovered/Resolved]
  - Dry mouth [Unknown]
  - Peripheral coldness [Unknown]
  - Oral pain [Unknown]

NARRATIVE: CASE EVENT DATE: 20171205
